FAERS Safety Report 25402129 (Version 1)
Quarter: 2025Q2

REPORT INFORMATION
  Report Type: Report from Study
  Country: CA (occurrence: CA)
  Receive Date: 20250605
  Receipt Date: 20250605
  Transmission Date: 20250717
  Serious: Yes (Death, Other)
  Sender: TAKEDA
  Company Number: CA-TAKEDA-2025TUS052217

PATIENT
  Sex: Male

DRUGS (8)
  1. VEDOLIZUMAB [Suspect]
     Active Substance: VEDOLIZUMAB
     Indication: Colitis ulcerative
     Dates: start: 20240806, end: 20250429
  2. REMICADE [Concomitant]
     Active Substance: INFLIXIMAB
  3. BUDESONIDE [Concomitant]
     Active Substance: BUDESONIDE
  4. AVSOLA [Concomitant]
     Active Substance: INFLIXIMAB-AXXQ
  5. RENFLEXIS [Concomitant]
     Active Substance: INFLIXIMAB-ABDA
  6. INFLECTRA [Concomitant]
     Active Substance: INFLIXIMAB-DYYB
  7. ENTOCORT [Concomitant]
     Active Substance: BUDESONIDE
  8. Cortiment [Concomitant]

REACTIONS (1)
  - Death [Fatal]
